FAERS Safety Report 9006650 (Version 1)
Quarter: 2013Q1

REPORT INFORMATION
  Report Type: Report from Study
  Country: US (occurrence: US)
  Receive Date: 20130110
  Receipt Date: 20130110
  Transmission Date: 20140127
  Serious: Yes (Hospitalization)
  Sender: FDA-Public Use
  Company Number: US-BAYER-2013-002326

PATIENT
  Age: 48 Year
  Sex: Male

DRUGS (1)
  1. STIVARGA [Suspect]
     Indication: COLON CANCER
     Dosage: 160 MG, DAILY FOR 21 DAYS THEN OFF 7 DAYS
     Dates: start: 20121114

REACTIONS (2)
  - Angina pectoris [None]
  - Dyspnoea [None]
